FAERS Safety Report 24623063 (Version 1)
Quarter: 2024Q4

REPORT INFORMATION
  Report Type: Spontaneous
  Country: US (occurrence: US)
  Receive Date: 20241115
  Receipt Date: 20241115
  Transmission Date: 20250114
  Serious: No
  Sender: AUROBINDO
  Company Number: US-AUROBINDO-AUR-APL-2024-046229

PATIENT
  Age: 58 Year
  Sex: Male
  Weight: 95.2 kg

DRUGS (2)
  1. LOSARTAN POTASSIUM [Suspect]
     Active Substance: LOSARTAN POTASSIUM
     Indication: Blood pressure measurement
     Dosage: UNK
     Route: 048
     Dates: start: 20240828
  2. METRONIDAZOLE [Concomitant]
     Active Substance: METRONIDAZOLE
     Indication: Product used for unknown indication
     Dosage: UNK
     Route: 065

REACTIONS (6)
  - Heart rate increased [Recovered/Resolved]
  - Chest pain [Recovered/Resolved]
  - Wrong technique in product usage process [Unknown]
  - Product label issue [Unknown]
  - Product taste abnormal [Unknown]
  - Product after taste [Unknown]

NARRATIVE: CASE EVENT DATE: 20240828
